FAERS Safety Report 10785212 (Version 2)
Quarter: 2015Q1

REPORT INFORMATION
  Report Type: Spontaneous
  Country: US (occurrence: US)
  Receive Date: 20150211
  Receipt Date: 20150226
  Transmission Date: 20150721
  Serious: Yes (Hospitalization)
  Sender: FDA-Public Use
  Company Number: US-BAYER-2015-019407

PATIENT
  Age: 27 Year
  Sex: Female
  Weight: 61.22 kg

DRUGS (2)
  1. IBUPROFEN. [Concomitant]
     Active Substance: IBUPROFEN
  2. MIRENA [Suspect]
     Active Substance: LEVONORGESTREL
     Indication: CONTRACEPTION
     Dosage: 20 MCG/24HR, CONT
     Route: 015
     Dates: start: 20130506, end: 20131103

REACTIONS (14)
  - Injury [None]
  - Internal injury [None]
  - Off label use [None]
  - Device issue [None]
  - Abdominal pain [None]
  - Fear [None]
  - Uterine perforation [None]
  - Anxiety [None]
  - Depressed mood [None]
  - Genital haemorrhage [None]
  - Emotional distress [None]
  - Medical device discomfort [None]
  - Pelvic pain [None]
  - Depression [None]

NARRATIVE: CASE EVENT DATE: 201311
